FAERS Safety Report 11521182 (Version 2)
Quarter: 2015Q4

REPORT INFORMATION
  Report Type: Spontaneous
  Country: US (occurrence: None)
  Receive Date: 20150918
  Receipt Date: 20151012
  Transmission Date: 20160304
  Serious: Yes (Other)
  Sender: FDA-Public Use
  Company Number: US-MDT-ADR-2015-01805

PATIENT
  Age: 65 Year
  Sex: Male

DRUGS (1)
  1. BACLOFEN INTRATHECAL [Suspect]
     Active Substance: BACLOFEN
     Indication: PAIN
     Dosage: 384MCG/DAY

REACTIONS (17)
  - Back pain [None]
  - Hypotonia [None]
  - Arthralgia [None]
  - Pain [None]
  - Loss of consciousness [None]
  - Oedema peripheral [None]
  - Dizziness [None]
  - Overdose [None]
  - Hypopnoea [None]
  - Somnolence [None]
  - Constipation [None]
  - Muscle spasms [None]
  - Muscle spasticity [None]
  - Pain in extremity [None]
  - Sleep disorder [None]
  - Drug hypersensitivity [None]
  - Gait disturbance [None]
